FAERS Safety Report 4815069-X (Version None)
Quarter: 2005Q4

REPORT INFORMATION
  Report Type: 
  Country: None (occurrence: None)
  Receive Date: 20051027
  Receipt Date: 20051014
  Transmission Date: 20060501
  Serious: Yes (Other)
  Sender: FDA-Public Use
  Company Number: 2005143585

PATIENT
  Sex: Male
  Weight: 78.0187 kg

DRUGS (3)
  1. VIAGRA [Suspect]
     Indication: ILL-DEFINED DISORDER
     Dosage: 100 MG, PRN, ORAL
     Route: 048
     Dates: start: 20010101
  2. ALBUTEROL [Concomitant]
  3. ADVAIR DISKUS 100/50 [Concomitant]

REACTIONS (3)
  - FALL [None]
  - NERVE COMPRESSION [None]
  - THORACIC VERTEBRAL FRACTURE [None]
